FAERS Safety Report 11841547 (Version 1)
Quarter: 2015Q4

REPORT INFORMATION
  Report Type: Report from Study
  Country: US (occurrence: US)
  Receive Date: 20151216
  Receipt Date: 20151216
  Transmission Date: 20160305
  Serious: Yes (Other)
  Sender: FDA-Public Use
  Company Number: US-BAXALTA-2015BLT003196

PATIENT
  Age: 39 Year
  Sex: Female
  Weight: 71.36 kg

DRUGS (1)
  1. HYQVIA [Suspect]
     Active Substance: HUMAN IMMUNOGLOBULIN G\HYALURONIDASE RECOMBINANT HUMAN
     Indication: IMMUNODEFICIENCY COMMON VARIABLE
     Dosage: UNK, RAMP UP
     Route: 058
     Dates: start: 20151128

REACTIONS (3)
  - Migraine [Recovered/Resolved]
  - Influenza like illness [Recovered/Resolved]
  - Tooth abscess [Recovering/Resolving]

NARRATIVE: CASE EVENT DATE: 20151202
